FAERS Safety Report 6896743-0 (Version None)
Quarter: 2010Q3

REPORT INFORMATION
  Report Type: 
  Country: None (occurrence: None)
  Receive Date: 20100802
  Receipt Date: 20070126
  Transmission Date: 20110219
  Serious: No
  Sender: FDA-Public Use
  Company Number: US-PFIZER INC-2007007961

PATIENT
  Sex: Female
  Weight: 62.6 kg

DRUGS (5)
  1. LYRICA [Suspect]
     Indication: GLOSSODYNIA
     Dates: start: 20060401
  2. LYRICA [Suspect]
     Indication: NERVE INJURY
  3. NORTRIPTYLINE HCL [Suspect]
     Indication: GLOSSODYNIA
     Dates: start: 20061001
  4. PRILOSEC [Concomitant]
  5. CALCIUM [Concomitant]

REACTIONS (9)
  - BLOOD CHOLESTEROL INCREASED [None]
  - CLUMSINESS [None]
  - CONFUSIONAL STATE [None]
  - DYSKINESIA [None]
  - FATIGUE [None]
  - FEELING ABNORMAL [None]
  - MOTOR DYSFUNCTION [None]
  - MUSCLE TWITCHING [None]
  - PARAESTHESIA [None]
